FAERS Safety Report 6923680-5 (Version None)
Quarter: 2010Q3

REPORT INFORMATION
  Report Type: 
  Country: None (occurrence: None)
  Receive Date: 20100813
  Receipt Date: 20100805
  Transmission Date: 20110219
  Serious: Yes (Hospitalization)
  Sender: FDA-Public Use
  Company Number: B0668634A

PATIENT
  Sex: Female

DRUGS (8)
  1. ARIXTRA [Suspect]
     Indication: THROMBOSIS PROPHYLAXIS
     Dosage: 2.5MG PER DAY
     Route: 042
     Dates: start: 20100528, end: 20100608
  2. AUGMENTIN '125' [Concomitant]
     Dosage: 3G PER DAY
     Route: 065
  3. REQUIP [Concomitant]
     Dosage: .25MG PER DAY
     Route: 065
  4. ENALAPRIL [Concomitant]
     Route: 065
  5. TRANSIPEG [Concomitant]
     Route: 065
  6. LASIX [Concomitant]
     Dosage: 40MG PER DAY
     Route: 065
  7. ROVAMYCINE [Concomitant]
     Dosage: 6U6 PER DAY
     Route: 065
  8. CORTANCYL [Concomitant]
     Dosage: 20MG IN THE MORNING
     Route: 065

REACTIONS (4)
  - BREAST HAEMATOMA [None]
  - GENERAL PHYSICAL HEALTH DETERIORATION [None]
  - PAIN [None]
  - RED BLOOD CELL COUNT DECREASED [None]
